FAERS Safety Report 9226095 (Version 2)
Quarter: 2014Q1

REPORT INFORMATION
  Report Type: Spontaneous
  Country: US (occurrence: US)
  Receive Date: 20130411
  Receipt Date: 20140103
  Transmission Date: 20141002
  Serious: No
  Sender: FDA-Public Use
  Company Number: US-ASTRAZENECA-2013SE20061

PATIENT
  Age: 62 Year
  Sex: Female
  Weight: 104.3 kg

DRUGS (11)
  1. NEXIUM [Suspect]
     Indication: GASTROOESOPHAGEAL REFLUX DISEASE
     Route: 048
     Dates: start: 2013
  2. NEXIUM [Suspect]
     Indication: GASTROOESOPHAGEAL REFLUX DISEASE
     Route: 048
     Dates: start: 2013
  3. NEXIUM [Suspect]
     Indication: GASTROOESOPHAGEAL REFLUX DISEASE
     Route: 048
     Dates: end: 20131215
  4. NEXIUM [Suspect]
     Indication: GASTROOESOPHAGEAL REFLUX DISEASE
     Route: 048
     Dates: end: 20131215
  5. OMEPRAZOLE [Suspect]
     Indication: GASTROOESOPHAGEAL REFLUX DISEASE
     Route: 048
     Dates: start: 2012, end: 201301
  6. OMEPRAZOLE [Suspect]
     Indication: GASTROOESOPHAGEAL REFLUX DISEASE
     Route: 048
     Dates: start: 201301
  7. GENERIC PAXIL [Concomitant]
     Indication: NERVOUSNESS
     Route: 048
  8. GENERIC PAXIL [Concomitant]
     Indication: ANXIETY
     Route: 048
  9. LEVOTHYROXIN [Concomitant]
  10. SIMVASTATIN [Concomitant]
     Indication: BLOOD CHOLESTEROL
  11. PAROXETINE [Concomitant]
     Indication: DEPRESSION

REACTIONS (15)
  - Weight decreased [Unknown]
  - Weight increased [Unknown]
  - Tension [Unknown]
  - Blood cholesterol increased [Unknown]
  - Eructation [Unknown]
  - Gastrooesophageal reflux disease [Unknown]
  - Breath odour [Unknown]
  - Fluid intake reduced [Unknown]
  - Tooth erosion [Unknown]
  - Vomiting [Unknown]
  - Abdominal pain upper [Unknown]
  - Eructation [Unknown]
  - Incorrect drug dosage form administered [Unknown]
  - Drug ineffective [Unknown]
  - Drug dose omission [Unknown]
